FAERS Safety Report 12988045 (Version 1)
Quarter: 2016Q4

REPORT INFORMATION
  Report Type: Spontaneous
  Country: JP (occurrence: JP)
  Receive Date: 20161130
  Receipt Date: 20161130
  Transmission Date: 20170207
  Serious: Yes (Death)
  Sender: FDA-Public Use
  Company Number: JP-MALLINCKRODT-T201606186

PATIENT
  Age: 52 Year
  Sex: Male
  Weight: 47 kg

DRUGS (21)
  1. CALONAL [Concomitant]
     Active Substance: ACETAMINOPHEN
     Indication: ANALGESIC THERAPY
     Dosage: 3000 MG, UNK
     Route: 048
     Dates: end: 20160525
  2. METHADONE [Suspect]
     Active Substance: METHADONE HYDROCHLORIDE
     Dosage: 40 MG DAILY DOSE
     Route: 048
     Dates: start: 20160527, end: 20160527
  3. MORPHINE HYDROCHLORIDE [Concomitant]
     Active Substance: MORPHINE HYDROCHLORIDE
     Indication: ANALGESIC THERAPY
     Dosage: 7 MG, PRN
     Route: 051
     Dates: start: 20160526
  4. FENTOS [Concomitant]
     Active Substance: FENTANYL
     Indication: ANALGESIC THERAPY
     Dosage: 10 MG, UNK
     Route: 062
     Dates: end: 20160520
  5. ZYPREXA [Concomitant]
     Active Substance: OLANZAPINE
     Dosage: 2.5 MG, UNK
     Route: 048
     Dates: end: 20160527
  6. VANCOMYCIN [Concomitant]
     Active Substance: VANCOMYCIN
     Dosage: 2400 MG, UNK
     Route: 051
     Dates: start: 20160527, end: 20160528
  7. ZOSYN [Concomitant]
     Active Substance: PIPERACILLIN SODIUM\TAZOBACTAM SODIUM
     Dosage: 13.5 G, UNK
     Route: 051
     Dates: start: 20160520, end: 20160528
  8. VANCOMYCIN [Concomitant]
     Active Substance: VANCOMYCIN
     Dosage: 2500 MG, UNK
     Route: 051
     Dates: start: 20160520, end: 20160523
  9. METHADONE [Suspect]
     Active Substance: METHADONE HYDROCHLORIDE
     Dosage: 25 MG DAILY DOSE
     Route: 048
     Dates: start: 20160523, end: 20160524
  10. FENTOS [Concomitant]
     Active Substance: FENTANYL
     Dosage: 2 MG, UNK
     Route: 062
     Dates: start: 20160523, end: 20160525
  11. BUSCOPAN [Concomitant]
     Active Substance: BUTYLSCOPOLAMINE BROMIDE
     Dosage: 30 MG, UNK
     Route: 048
     Dates: end: 20160527
  12. METHADONE [Suspect]
     Active Substance: METHADONE HYDROCHLORIDE
     Dosage: 15 MG (45 MG DAILY DOSE)
     Route: 048
     Dates: start: 20160526, end: 20160526
  13. METHADONE [Suspect]
     Active Substance: METHADONE HYDROCHLORIDE
     Dosage: 45 MG DAILY DOSE
     Route: 048
     Dates: start: 20160528, end: 20160528
  14. FENTOS [Concomitant]
     Active Substance: FENTANYL
     Dosage: 6 MG, UNK
     Route: 062
     Dates: start: 20160520, end: 20160521
  15. FENTOS [Concomitant]
     Active Substance: FENTANYL
     Dosage: 4 MG, UNK
     Route: 062
     Dates: start: 20160526, end: 20160529
  16. METHADONE [Suspect]
     Active Substance: METHADONE HYDROCHLORIDE
     Dosage: 40 MG DAILY DOSE
     Route: 048
     Dates: start: 20160525, end: 20160525
  17. FENTOS [Concomitant]
     Active Substance: FENTANYL
     Dosage: 4 MG, UNK
     Route: 062
     Dates: start: 20160522, end: 20160522
  18. VANCOMYCIN [Concomitant]
     Active Substance: VANCOMYCIN
     Dosage: 3 G, UNK
     Route: 051
     Dates: start: 20160524, end: 20160526
  19. METHADONE [Suspect]
     Active Substance: METHADONE HYDROCHLORIDE
     Indication: CANCER PAIN
     Dosage: 5 MG (15 MG DAILY DOSE)
     Route: 048
     Dates: start: 20160520, end: 20160523
  20. FUROSEMIDE. [Concomitant]
     Active Substance: FUROSEMIDE
     Dosage: 40 MG, UNK
     Route: 048
     Dates: end: 20160527
  21. SPIRONOLACTONE. [Concomitant]
     Active Substance: SPIRONOLACTONE
     Dosage: 75 MG, UNK
     Route: 048
     Dates: end: 20160527

REACTIONS (1)
  - Tongue neoplasm malignant stage unspecified [Fatal]

NARRATIVE: CASE EVENT DATE: 20160529
